FAERS Safety Report 6635228-3 (Version None)
Quarter: 2010Q1

REPORT INFORMATION
  Report Type: 
  Country: None (occurrence: None)
  Receive Date: 20100315
  Receipt Date: 20100312
  Transmission Date: 20100710
  Serious: Yes (Other)
  Sender: FDA-Public Use
  Company Number: GXKR2010DE02895

PATIENT
  Age: 36 Year
  Sex: Female
  Weight: 88 kg

DRUGS (1)
  1. METFORMIN 1A PHARMA (NGX) [Suspect]
     Indication: DIABETES MELLITUS
     Dosage: 850 MG, BID
     Route: 048
     Dates: end: 20100115

REACTIONS (1)
  - INTRA-UTERINE DEATH [None]
